FAERS Safety Report 17598073 (Version 1)
Quarter: 2020Q1

REPORT INFORMATION
  Report Type: Spontaneous
  Country: US (occurrence: US)
  Receive Date: 20200328
  Receipt Date: 20200328
  Transmission Date: 20200409
  Serious: Yes (Other)
  Sender: FDA-Public Use
  Company Number: None

PATIENT
  Age: 50 Year
  Sex: Male
  Weight: 86.85 kg

DRUGS (6)
  1. LEVERPHANOL [Concomitant]
  2. SYNTHROID [Concomitant]
     Active Substance: LEVOTHYROXINE SODIUM
  3. PAIN PUMP WITH DILUTED [Concomitant]
  4. OXYCODONE [Concomitant]
     Active Substance: OXYCODONE
  5. PRAVASTATIN. [Concomitant]
     Active Substance: PRAVASTATIN
  6. CEPHALEXIN. [Suspect]
     Active Substance: CEPHALEXIN
     Indication: URINARY TRACT INFECTION
     Dosage: ?          QUANTITY:1 CAPSULE(S);?
     Route: 048
     Dates: start: 20200319, end: 20200327

REACTIONS (4)
  - Insomnia [None]
  - Ear pain [None]
  - Headache [None]
  - Tinnitus [None]

NARRATIVE: CASE EVENT DATE: 20200327
